FAERS Safety Report 10248486 (Version 1)
Quarter: 2014Q2

REPORT INFORMATION
  Report Type: Spontaneous
  Country: US (occurrence: US)
  Receive Date: 20140620
  Receipt Date: 20140620
  Transmission Date: 20141212
  Serious: Yes (Other)
  Sender: FDA-Public Use
  Company Number: US-BRISTOL-MYERS SQUIBB COMPANY-21017611

PATIENT
  Age: 71 Year
  Sex: Male
  Weight: 74.83 kg

DRUGS (1)
  1. ABILIFY [Suspect]
     Indication: BIPOLAR DISORDER
     Dosage: 10 OR 20 MG

REACTIONS (3)
  - Mania [Unknown]
  - Constipation [Unknown]
  - Irritability [Unknown]
